FAERS Safety Report 7414913-X (Version None)
Quarter: 2011Q2

REPORT INFORMATION
  Report Type: 
  Country: None (occurrence: None)
  Receive Date: 20110414
  Receipt Date: 20110330
  Transmission Date: 20111010
  Serious: Yes (Hospitalization, Other)
  Sender: FDA-Public Use
  Company Number: US-BAYER-2011-027832

PATIENT
  Age: 62 Year
  Sex: Female
  Weight: 62.27 kg

DRUGS (2)
  1. NEXAVAR [Suspect]
     Indication: HEPATIC NEOPLASM MALIGNANT
     Dosage: 400 MG, BID
     Route: 048
     Dates: start: 20110325
  2. TARCEVA [Concomitant]
     Indication: HEPATIC NEOPLASM MALIGNANT
     Dosage: 100 MG, QD
     Route: 048
     Dates: start: 20110301

REACTIONS (5)
  - ABDOMINAL PAIN [None]
  - WEIGHT DECREASED [None]
  - PYREXIA [None]
  - MUCOSAL INFLAMMATION [None]
  - MENTAL STATUS CHANGES [None]
